FAERS Safety Report 9128582 (Version 1)
Quarter: 2013Q1

REPORT INFORMATION
  Report Type: Spontaneous
  Country: US (occurrence: US)
  Receive Date: 20130125
  Receipt Date: 20130125
  Transmission Date: 20140127
  Serious: Yes (Hospitalization, Other)
  Sender: FDA-Public Use
  Company Number: US-AMGEN-USASP2013004451

PATIENT
  Sex: Male

DRUGS (3)
  1. ENBREL [Suspect]
     Indication: RHEUMATOID ARTHRITIS
     Dosage: UNK
     Dates: start: 20061118
  2. ENBREL [Suspect]
     Indication: ANKYLOSING SPONDYLITIS
  3. HUMIRA [Concomitant]
     Dosage: UNK

REACTIONS (7)
  - Coronary artery bypass [Recovered/Resolved]
  - Mycobacterial infection [Recovered/Resolved]
  - Pain [Recovered/Resolved]
  - Rheumatoid arthritis [Not Recovered/Not Resolved]
  - Ankylosing spondylitis [Not Recovered/Not Resolved]
  - Laceration [Recovered/Resolved]
  - Wound infection [Recovered/Resolved]
